FAERS Safety Report 10684770 (Version 1)
Quarter: 2014Q4

REPORT INFORMATION
  Report Type: Spontaneous
  Country: CH (occurrence: CH)
  Receive Date: 20141231
  Receipt Date: 20141231
  Transmission Date: 20150529
  Serious: Yes (Death)
  Sender: FDA-Public Use
  Company Number: CH-JNJFOC-20141216565

PATIENT
  Age: 84 Year
  Sex: Male

DRUGS (11)
  1. MADOPAR [Concomitant]
     Active Substance: BENSERAZIDE HYDROCHLORIDE\LEVODOPA
     Route: 048
  2. XARELTO [Suspect]
     Active Substance: RIVAROXABAN
     Indication: ANTICOAGULANT THERAPY
     Route: 048
  3. XARELTO [Suspect]
     Active Substance: RIVAROXABAN
     Indication: THROMBOSIS PROPHYLAXIS
     Route: 048
  4. XARELTO [Suspect]
     Active Substance: RIVAROXABAN
     Indication: ATRIAL FIBRILLATION
     Route: 048
  5. SPIRIVA [Concomitant]
     Active Substance: TIOTROPIUM BROMIDE MONOHYDRATE
     Route: 055
  6. LEVODOPA-CARBIDOPA [Concomitant]
     Active Substance: CARBIDOPA\LEVODOPA
     Route: 048
  7. XARELTO [Suspect]
     Active Substance: RIVAROXABAN
     Indication: CEREBROVASCULAR ACCIDENT PROPHYLAXIS
     Route: 048
  8. CONCOR [Concomitant]
     Active Substance: BISOPROLOL FUMARATE
     Route: 048
  9. DENOSUMAB [Concomitant]
     Active Substance: DENOSUMAB
     Route: 058
  10. CYMBALTA [Concomitant]
     Active Substance: DULOXETINE HYDROCHLORIDE
     Route: 048
  11. CO-DIOVAN [Concomitant]
     Active Substance: HYDROCHLOROTHIAZIDE\VALSARTAN
     Route: 048

REACTIONS (3)
  - Respiratory failure [Fatal]
  - Subarachnoid haemorrhage [Fatal]
  - Coma [Fatal]

NARRATIVE: CASE EVENT DATE: 20141122
